FAERS Safety Report 7262436-3 (Version None)
Quarter: 2011Q1

REPORT INFORMATION
  Report Type: 
  Country: None (occurrence: None)
  Receive Date: 20110130
  Receipt Date: 20101118
  Transmission Date: 20110831
  Serious: No
  Sender: FDA-Public Use
  Company Number: US-ABBOTT-10P-163-0686419-00

PATIENT
  Age: 79 Year
  Sex: Female

DRUGS (7)
  1. DEPAKOTE [Concomitant]
     Indication: RESTLESSNESS
  2. AVAPRO [Concomitant]
     Indication: HYPERTENSION
  3. FOLIC ACID [Concomitant]
     Indication: PRODUCT USED FOR UNKNOWN INDICATION
  4. HUMIRA [Suspect]
     Indication: RHEUMATOID ARTHRITIS
     Dates: start: 20100401
  5. KLONAPIN [Concomitant]
     Indication: RESTLESSNESS
  6. METHOTREXATE [Concomitant]
     Indication: RHEUMATOID ARTHRITIS
     Dosage: 2.5MG X 6 TABLETS
  7. CYMBALTA [Concomitant]
     Indication: DEPRESSION

REACTIONS (3)
  - PRODUCTIVE COUGH [None]
  - BLOOD CHOLESTEROL INCREASED [None]
  - PARANASAL SINUS HYPERSECRETION [None]
